FAERS Safety Report 13247306 (Version 1)
Quarter: 2017Q1

REPORT INFORMATION
  Report Type: Report from Study
  Country: None (occurrence: US)
  Receive Date: 20170217
  Receipt Date: 20170217
  Transmission Date: 20170428
  Serious: Yes (Hospitalization)
  Sender: FDA-Public Use
  Company Number: US-ABBVIE-17K-163-1874309-00

PATIENT
  Sex: Male

DRUGS (1)
  1. HUMIRA [Suspect]
     Active Substance: ADALIMUMAB
     Indication: PSORIATIC ARTHROPATHY
     Route: 058

REACTIONS (11)
  - Tonsillar hypertrophy [Recovered/Resolved]
  - Obstructive airways disorder [Recovered/Resolved]
  - Dysphagia [Unknown]
  - White blood cell count increased [Unknown]
  - Dysphagia [Recovered/Resolved]
  - Dysphagia [Recovered/Resolved]
  - Obstructive airways disorder [Unknown]
  - Tonsillar hypertrophy [Recovered/Resolved]
  - Tonsillar hypertrophy [Unknown]
  - Obstructive airways disorder [Recovered/Resolved]
  - Heart rate decreased [Unknown]

NARRATIVE: CASE EVENT DATE: 2012
